FAERS Safety Report 23056157 (Version 5)
Quarter: 2024Q3

REPORT INFORMATION
  Report Type: Spontaneous
  Country: HR (occurrence: HR)
  Receive Date: 20231011
  Receipt Date: 20240904
  Transmission Date: 20241017
  Serious: Yes (Other)
  Sender: MYLAN
  Company Number: HR-BRISTOL-MYERS SQUIBB COMPANY-2023-137398

PATIENT
  Age: 63 Year
  Sex: Male

DRUGS (44)
  1. LENALIDOMIDE [Suspect]
     Active Substance: LENALIDOMIDE
     Indication: Osteolysis
     Dosage: 5 TIMES AS A PART OF DRD REGIMEN
     Route: 065
     Dates: start: 202208, end: 202302
  2. LENALIDOMIDE [Suspect]
     Active Substance: LENALIDOMIDE
     Indication: Plasma cell myeloma
  3. LENALIDOMIDE [Suspect]
     Active Substance: LENALIDOMIDE
     Indication: Light chain disease
  4. DEXAMETHASONE [Suspect]
     Active Substance: DEXAMETHASONE
     Indication: Plasma cell myeloma
     Dosage: 5 TIMES AS A PART OF VCD REGIMEN
     Route: 065
     Dates: start: 202203, end: 202205
  5. DEXAMETHASONE [Suspect]
     Active Substance: DEXAMETHASONE
     Indication: Osteolysis
     Dosage: 5 TIMES AS A PART OF DRD REGIMEN
     Route: 065
     Dates: start: 202208, end: 202302
  6. DEXAMETHASONE [Suspect]
     Active Substance: DEXAMETHASONE
     Indication: Light chain disease
     Dosage: 5X DRD
     Route: 065
     Dates: start: 202208, end: 202302
  7. DEXAMETHASONE [Suspect]
     Active Substance: DEXAMETHASONE
     Dosage: 1 TIME AS A PART OF KD+PACE REGIMEN
     Route: 065
     Dates: start: 202303, end: 202303
  8. DEXAMETHASONE [Suspect]
     Active Substance: DEXAMETHASONE
     Dosage: 1X KD
     Route: 065
     Dates: start: 202303, end: 202303
  9. DEXAMETHASONE [Suspect]
     Active Substance: DEXAMETHASONE
     Dosage: 3 TIMES, AS A PART OF KD+MP REGIMEN
     Route: 065
     Dates: start: 202304, end: 202306
  10. DEXAMETHASONE [Suspect]
     Active Substance: DEXAMETHASONE
     Dosage: 3 TIMES AS A PART OF VAD+ IXAZOMIB REGIMEN
     Route: 065
     Dates: start: 202306, end: 202308
  11. DARZALEX [Suspect]
     Active Substance: DARATUMUMAB
     Indication: Plasma cell myeloma
     Dosage: 5 TIMES AS A PART OF DRD REGIMEN
     Route: 065
     Dates: start: 202208, end: 202302
  12. DARZALEX [Suspect]
     Active Substance: DARATUMUMAB
     Indication: Osteolysis
     Dosage: 5X DRD
     Route: 065
     Dates: start: 202208, end: 202302
  13. DARZALEX [Suspect]
     Active Substance: DARATUMUMAB
     Indication: Light chain disease
  14. CISPLATIN [Suspect]
     Active Substance: CISPLATIN
     Indication: Plasma cell myeloma
     Dosage: 1 TIME AS A PART OF KD+PACE REGIMEN
     Route: 065
     Dates: start: 202303, end: 202303
  15. CISPLATIN [Suspect]
     Active Substance: CISPLATIN
     Indication: Osteolysis
     Dosage: 1X KD
     Route: 065
     Dates: start: 202303, end: 202303
  16. CISPLATIN [Suspect]
     Active Substance: CISPLATIN
     Indication: Light chain disease
  17. MELPHALAN [Suspect]
     Active Substance: MELPHALAN
     Indication: Plasma cell myeloma
     Dosage: 3 TIMES, AS A PART OF KD+MP REGIMEN
     Route: 065
     Dates: start: 202304, end: 202306
  18. MELPHALAN [Suspect]
     Active Substance: MELPHALAN
     Indication: Osteolysis
  19. MELPHALAN [Suspect]
     Active Substance: MELPHALAN
     Indication: Light chain disease
  20. IXAZOMIB [Suspect]
     Active Substance: IXAZOMIB
     Indication: Plasma cell myeloma
     Dosage: 3 TIMES AS A PART OF VAD+ IXAZOMIB REGIMEN
     Route: 065
     Dates: start: 202306, end: 202308
  21. IXAZOMIB [Suspect]
     Active Substance: IXAZOMIB
     Indication: Osteolysis
  22. IXAZOMIB [Suspect]
     Active Substance: IXAZOMIB
     Indication: Light chain disease
  23. PREDNISONE [Suspect]
     Active Substance: PREDNISONE
     Indication: Osteolysis
     Dosage: 3 TIMES, AS A PART OF KD+MP REGIMEN
     Route: 065
     Dates: start: 202304, end: 202306
  24. PREDNISONE [Suspect]
     Active Substance: PREDNISONE
     Indication: Plasma cell myeloma
     Dosage: 3X KD
     Route: 065
     Dates: start: 202304, end: 202306
  25. PREDNISONE [Suspect]
     Active Substance: PREDNISONE
     Indication: Light chain disease
  26. DOXORUBICIN [Suspect]
     Active Substance: DOXORUBICIN
     Indication: Osteolysis
     Dosage: 1 TIME AS A PART OF KD+ PACE REGIMEN
     Route: 065
     Dates: start: 202303, end: 202303
  27. DOXORUBICIN [Suspect]
     Active Substance: DOXORUBICIN
     Indication: Plasma cell myeloma
     Dosage: 3 TIMES AS A PART OF VAD+ IXAZOMIB REGIMEN
     Route: 065
     Dates: start: 202306, end: 202308
  28. DOXORUBICIN [Suspect]
     Active Substance: DOXORUBICIN
     Indication: Light chain disease
  29. ETOPOSIDE [Suspect]
     Active Substance: ETOPOSIDE
     Indication: Osteolysis
     Dosage: 1 TIME AS A PART OF KD+PACE REGIMEN
     Route: 065
     Dates: start: 202303, end: 202303
  30. ETOPOSIDE [Suspect]
     Active Substance: ETOPOSIDE
     Indication: Plasma cell myeloma
     Dosage: 1X KD
     Route: 065
     Dates: start: 202303, end: 202303
  31. ETOPOSIDE [Suspect]
     Active Substance: ETOPOSIDE
     Indication: Light chain disease
  32. CARFILZOMIB [Suspect]
     Active Substance: CARFILZOMIB
     Indication: Osteolysis
     Dosage: 1 TIME AS A PART OF KD+PACE REGIMEN
     Route: 065
     Dates: start: 202303, end: 202303
  33. CARFILZOMIB [Suspect]
     Active Substance: CARFILZOMIB
     Indication: Plasma cell myeloma
     Dosage: 1X KD
     Route: 065
     Dates: start: 202303, end: 202303
  34. CARFILZOMIB [Suspect]
     Active Substance: CARFILZOMIB
     Indication: Light chain disease
     Dosage: 3 TIMES, AS A PART OF KD+MP REGIMEN
     Route: 065
     Dates: start: 202304, end: 202306
  35. CARFILZOMIB [Suspect]
     Active Substance: CARFILZOMIB
     Dosage: 3X KD
     Route: 065
     Dates: start: 202304, end: 202306
  36. CYCLOPHOSPHAMIDE [Suspect]
     Active Substance: CYCLOPHOSPHAMIDE
     Indication: Osteolysis
     Dosage: 5 TIMES AS A PART OF VCD REGIMEN
     Route: 065
     Dates: start: 202203, end: 202205
  37. CYCLOPHOSPHAMIDE [Suspect]
     Active Substance: CYCLOPHOSPHAMIDE
     Indication: Plasma cell myeloma
     Dosage: 1 TIME AS A PART OF KD+ PACE REGIMEN
     Route: 065
     Dates: start: 202303, end: 202303
  38. CYCLOPHOSPHAMIDE [Suspect]
     Active Substance: CYCLOPHOSPHAMIDE
     Indication: Light chain disease
     Dosage: 1X KD
     Route: 065
     Dates: start: 202303, end: 202303
  39. VINCRISTINE [Suspect]
     Active Substance: VINCRISTINE
     Indication: Osteolysis
     Dosage: 3 TIMES AS A PART OF VAD+ IXAZOMIB REGIMEN
     Route: 065
     Dates: start: 202306, end: 202308
  40. VINCRISTINE [Suspect]
     Active Substance: VINCRISTINE
     Indication: Plasma cell myeloma
  41. VINCRISTINE [Suspect]
     Active Substance: VINCRISTINE
     Indication: Light chain disease
  42. VELCADE [Suspect]
     Active Substance: BORTEZOMIB
     Indication: Osteolysis
     Dosage: 5 TIMES AS A PART OF VCD REGIMEN
     Route: 065
     Dates: start: 202203, end: 202205
  43. VELCADE [Suspect]
     Active Substance: BORTEZOMIB
     Indication: Plasma cell myeloma
  44. VELCADE [Suspect]
     Active Substance: BORTEZOMIB
     Indication: Light chain disease

REACTIONS (5)
  - Plasma cell myeloma [Unknown]
  - Light chain disease [Unknown]
  - Febrile neutropenia [Unknown]
  - Neutropenia [Unknown]
  - Therapy partial responder [Unknown]

NARRATIVE: CASE EVENT DATE: 20230101
